FAERS Safety Report 6438385-7 (Version None)
Quarter: 2009Q4

REPORT INFORMATION
  Report Type: 
  Country: None (occurrence: None)
  Receive Date: 20091112
  Receipt Date: 20091104
  Transmission Date: 20100525
  Serious: Yes (Other)
  Sender: FDA-Public Use
  Company Number: GB-AMGEN-QUU373245

PATIENT
  Age: 33 Year
  Sex: Female

DRUGS (3)
  1. ARANESP [Suspect]
     Indication: DIALYSIS
     Dates: start: 20020101
  2. EPREX [Suspect]
     Dates: start: 20020615, end: 20030215
  3. NEORECORMON [Suspect]
     Dates: start: 20030215

REACTIONS (3)
  - ANAEMIA [None]
  - DRUG SPECIFIC ANTIBODY ABSENT [None]
  - THERAPEUTIC RESPONSE DECREASED [None]
